FAERS Safety Report 4337042-0 (Version None)
Quarter: 2004Q1

REPORT INFORMATION
  Report Type: 
  Country: None (occurrence: None)
  Receive Date: 20040329
  Receipt Date: 20040115
  Transmission Date: 20041129
  Serious: No
  Sender: FDA-Public Use
  Company Number: USA040156750

PATIENT
  Age: 41 Year
  Sex: Male
  Weight: 76 kg

DRUGS (2)
  1. STRATTERA [Suspect]
     Indication: ATTENTION DEFICIT/HYPERACTIVITY DISORDER
     Dosage: 40 MG/DAY
     Dates: start: 20040107
  2. CONCERTA [Concomitant]

REACTIONS (2)
  - INSOMNIA [None]
  - PALPITATIONS [None]
